FAERS Safety Report 11139302 (Version 1)
Quarter: 2015Q2

REPORT INFORMATION
  Report Type: Spontaneous
  Country: GB (occurrence: None)
  Receive Date: 20150522
  Receipt Date: 20150522
  Transmission Date: 20150821
  Serious: Yes (Hospitalization, Disabling)
  Sender: FDA-Public Use
  Company Number: 20151553

PATIENT
  Age: 19 Year
  Sex: Female

DRUGS (9)
  1. ENBREL [Suspect]
     Active Substance: ETANERCEPT
     Indication: JUVENILE IDIOPATHIC ARTHRITIS
     Route: 058
     Dates: start: 200307, end: 200309
  2. PREDNISOLONE (PREDNISOLONE) [Suspect]
     Active Substance: PREDNISOLONE
     Dosage: X IN 1 ?
  3. PIROXICAM. [Concomitant]
     Active Substance: PIROXICAM
  4. LORATADINE. [Concomitant]
     Active Substance: LORATADINE
  5. METHOTREXATE [Suspect]
     Active Substance: METHOTREXATE
  6. IRON SULPHATE??? [Concomitant]
  7. FOLIC ACID. [Concomitant]
     Active Substance: FOLIC ACID
  8. INFLIXIMAB [Concomitant]
     Active Substance: INFLIXIMAB
  9. RANITIDINE [Concomitant]
     Active Substance: RANITIDINE\RANITIDINE HYDROCHLORIDE

REACTIONS (2)
  - Acute psychosis [None]
  - Arthritis [None]

NARRATIVE: CASE EVENT DATE: 20030821
